FAERS Safety Report 9569461 (Version 4)
Quarter: 2013Q4

REPORT INFORMATION
  Report Type: Spontaneous
  Country: US (occurrence: US)
  Receive Date: 20130930
  Receipt Date: 20131202
  Transmission Date: 20140711
  Serious: No
  Sender: FDA-Public Use
  Company Number: US-AMGEN-USASP2013045170

PATIENT
  Age: 33 Year
  Sex: Male

DRUGS (2)
  1. ENBREL [Suspect]
     Indication: PSORIASIS
     Dosage: 50 MG, QWK
     Route: 058
     Dates: start: 20130111, end: 201310
  2. ENBREL [Suspect]
     Indication: PSORIATIC ARTHROPATHY

REACTIONS (5)
  - Drug effect incomplete [Not Recovered/Not Resolved]
  - Cough [Not Recovered/Not Resolved]
  - Psoriasis [Not Recovered/Not Resolved]
  - Nasopharyngitis [Not Recovered/Not Resolved]
  - Localised infection [Not Recovered/Not Resolved]
